FAERS Safety Report 15034317 (Version 2)
Quarter: 2018Q3

REPORT INFORMATION
  Report Type: Report from Study
  Country: US (occurrence: US)
  Receive Date: 20180620
  Receipt Date: 20180704
  Transmission Date: 20181010
  Serious: Yes (Death, Hospitalization, Other)
  Sender: FDA-Public Use
  Company Number: US-ROCHE-2141047

PATIENT
  Sex: Male

DRUGS (9)
  1. VALCYTE [Suspect]
     Active Substance: VALGANCICLOVIR HYDROCHLORIDE
     Indication: LUNG TRANSPLANT
  2. MICAFUNGIN [Concomitant]
     Active Substance: MICAFUNGIN
  3. VALCYTE [Suspect]
     Active Substance: VALGANCICLOVIR HYDROCHLORIDE
     Indication: COMPLICATIONS OF TRANSPLANT SURGERY
     Dosage: 1 TAB BID
     Route: 065
  4. DAPSONE. [Concomitant]
     Active Substance: DAPSONE
     Route: 065
  5. MORPHINE [Concomitant]
     Active Substance: MORPHINE
  6. MYCOPHENOLATE MOFETIL. [Suspect]
     Active Substance: MYCOPHENOLATE MOFETIL
     Indication: PRODUCT USED FOR UNKNOWN INDICATION
     Route: 065
  7. VANCOMYCIN [Concomitant]
     Active Substance: VANCOMYCIN
  8. ESBRIET [Suspect]
     Active Substance: PIRFENIDONE
     Indication: PRODUCT USED FOR UNKNOWN INDICATION
     Route: 065
  9. FILGRASTIM [Concomitant]
     Active Substance: FILGRASTIM
     Route: 065

REACTIONS (20)
  - Drug hypersensitivity [Unknown]
  - Pyrexia [Unknown]
  - Malaise [Unknown]
  - Right ventricular dysfunction [Unknown]
  - Asthenia [Unknown]
  - Acute kidney injury [Unknown]
  - Intentional product use issue [Unknown]
  - Therapeutic response decreased [Unknown]
  - Pancytopenia [Unknown]
  - Thrombocytopenia [Unknown]
  - Cerebral arteriosclerosis [Unknown]
  - Off label use [Unknown]
  - Pleural effusion [Unknown]
  - Ventricular hypokinesia [Unknown]
  - Dyspnoea exertional [Unknown]
  - Leukopenia [Unknown]
  - Dyspnoea [Unknown]
  - Ventricular internal diameter abnormal [Unknown]
  - Papule [Unknown]
  - Death [Fatal]
